FAERS Safety Report 7250485-0 (Version None)
Quarter: 2011Q1

REPORT INFORMATION
  Report Type: 
  Country: None (occurrence: None)
  Receive Date: 20110128
  Receipt Date: 20110117
  Transmission Date: 20110831
  Serious: Yes (Hospitalization)
  Sender: FDA-Public Use
  Company Number: US-ACTELION-A-NJ2010-42119

PATIENT

DRUGS (2)
  1. BOSENTAN TABLET UNKNOWN US MG [Suspect]
     Indication: PULMONARY ARTERIAL HYPERTENSION
     Dosage: UNK
     Route: 048
     Dates: start: 20100708
  2. CALCIUM CHANNEL BLOCKERS [Concomitant]

REACTIONS (5)
  - COUGH [None]
  - DYSPNOEA [None]
  - CARDIAC FAILURE [None]
  - PYREXIA [None]
  - CYSTITIS [None]
